FAERS Safety Report 8354191-0 (Version None)
Quarter: 2012Q2

REPORT INFORMATION
  Report Type: 
  Country: None (occurrence: None)
  Receive Date: 20120511
  Receipt Date: 20120504
  Transmission Date: 20120825
  Serious: Yes (Other)
  Sender: FDA-Public Use
  Company Number: US-ROCHE-1066241

PATIENT
  Age: 66 Year
  Sex: Female
  Weight: 64.468 kg

DRUGS (1)
  1. XELODA [Suspect]
     Indication: BREAST CANCER METASTATIC
     Route: 048
     Dates: start: 20120319

REACTIONS (3)
  - ERYTHEMA [None]
  - HYPOAESTHESIA [None]
  - HYPERAESTHESIA [None]
